FAERS Safety Report 7505365-X (Version None)
Quarter: 2011Q2

REPORT INFORMATION
  Report Type: 
  Country: None (occurrence: None)
  Receive Date: 20110526
  Receipt Date: 20110511
  Transmission Date: 20111010
  Serious: Yes (Life-Threatening)
  Sender: FDA-Public Use
  Company Number: CZ-JNJFOC-20110505432

PATIENT
  Sex: Female

DRUGS (6)
  1. AERIUS [Concomitant]
     Indication: PREMEDICATION
     Route: 048
  2. REMICADE [Suspect]
     Route: 042
     Dates: start: 20110407
  3. REMICADE [Suspect]
     Route: 042
     Dates: start: 20110421, end: 20110421
  4. PREDNISONE [Concomitant]
     Indication: PREMEDICATION
     Route: 048
  5. BELARA [Concomitant]
     Indication: ORAL CONTRACEPTION
     Route: 048
  6. REMICADE [Suspect]
     Indication: PSORIASIS
     Route: 042
     Dates: end: 20100101

REACTIONS (6)
  - DYSPNOEA [None]
  - NAUSEA [None]
  - CYANOSIS [None]
  - DRUG EXPOSURE DURING PREGNANCY [None]
  - ABDOMINAL PAIN [None]
  - INFUSION RELATED REACTION [None]
